FAERS Safety Report 5856231-7 (Version None)
Quarter: 2008Q3

REPORT INFORMATION
  Report Type: 
  Country: None (occurrence: None)
  Receive Date: 20080825
  Receipt Date: 20080820
  Transmission Date: 20090109
  Serious: Yes (Other)
  Sender: FDA-Public Use
  Company Number: A0744083A

PATIENT
  Age: 47 Year
  Sex: Male
  Weight: 111.4 kg

DRUGS (4)
  1. AVANDIA [Suspect]
     Dosage: 2MG UNKNOWN
     Route: 048
     Dates: start: 20010101, end: 20070101
  2. TOPROL-XL [Concomitant]
     Dates: start: 20060101
  3. NITROGLYCERIN [Concomitant]
     Dates: start: 20070501
  4. PAXIL [Concomitant]
     Dates: start: 20030101

REACTIONS (2)
  - ARTERIAL OCCLUSIVE DISEASE [None]
  - MYOCARDIAL INFARCTION [None]
